FAERS Safety Report 24771857 (Version 1)
Quarter: 2024Q4

REPORT INFORMATION
  Report Type: Report from Study
  Country: IN (occurrence: IN)
  Receive Date: 20241224
  Receipt Date: 20241224
  Transmission Date: 20250115
  Serious: Yes (Hospitalization)
  Sender: DAIICHI
  Company Number: IN-AstraZeneca-CH-00768408A

PATIENT
  Sex: Male
  Weight: 86 kg

DRUGS (1)
  1. ENHERTU [Suspect]
     Active Substance: FAM-TRASTUZUMAB DERUXTECAN-NXKI
     Indication: Product used for unknown indication
     Dosage: 500 MG
     Route: 041

REACTIONS (1)
  - Dysphagia [Unknown]
